FAERS Safety Report 5377569-6 (Version None)
Quarter: 2007Q3

REPORT INFORMATION
  Report Type: 
  Country: None (occurrence: None)
  Receive Date: 20070703
  Receipt Date: 20070621
  Transmission Date: 20080115
  Serious: Yes (Hospitalization, Other)
  Sender: FDA-Public Use
  Company Number: US-PFIZER INC-2007052656

PATIENT
  Sex: Male
  Weight: 205 kg

DRUGS (3)
  1. CHANTIX [Suspect]
     Indication: EX-SMOKER
  2. ACETYLSALICYLIC ACID SRT [Concomitant]
  3. VALSARTAN [Concomitant]
     Indication: HYPERTENSION

REACTIONS (3)
  - ACUTE CORONARY SYNDROME [None]
  - CARDIAC ENZYMES INCREASED [None]
  - CORONARY ARTERY OCCLUSION [None]
